FAERS Safety Report 6746283-4 (Version None)
Quarter: 2010Q2

REPORT INFORMATION
  Report Type: 
  Country: None (occurrence: None)
  Receive Date: 20100528
  Receipt Date: 20100517
  Transmission Date: 20101027
  Serious: Yes (Hospitalization)
  Sender: FDA-Public Use
  Company Number: US-ELI_LILLY_AND_COMPANY-US201005005862

PATIENT
  Age: 91 Year
  Sex: Female

DRUGS (9)
  1. FORTEO [Suspect]
     Indication: OSTEOPOROSIS
     Dosage: 20 UG, DAILY (1/D)
     Dates: start: 20090801, end: 20100401
  2. LASIX [Concomitant]
     Indication: FLUID RETENTION
     Dosage: 20 MG, DAILY (1/D)
  3. SYNTHROID [Concomitant]
     Indication: THYROID DISORDER
     Dosage: 0.075 MG, DAILY (1/D)
  4. TOPROL-XL [Concomitant]
     Indication: HYPERTENSION
     Dosage: 50 MG, DAILY (1/D)
  5. ALTACE [Concomitant]
     Indication: HYPERTENSION
     Dosage: 0.5 MG, DAILY (1/D)
  6. MEDROL [Concomitant]
     Indication: GOUT
     Dosage: 1 D/F, DAILY (1/D)
  7. ASPIRIN [Concomitant]
     Dosage: 81 MG, DAILY (1/D)
  8. VICODIN [Concomitant]
     Dosage: 1 D/F, OTHER
  9. VITAMIN B 12 LICHTENSTEIN [Concomitant]
     Dosage: UNK, MONTHLY (1/M)

REACTIONS (4)
  - BACK PAIN [None]
  - DECREASED APPETITE [None]
  - SEPSIS [None]
  - SKIN INFECTION [None]
